FAERS Safety Report 22787821 (Version 4)
Quarter: 2024Q1

REPORT INFORMATION
  Report Type: Spontaneous
  Country: US (occurrence: US)
  Receive Date: 20230804
  Receipt Date: 20240229
  Transmission Date: 20240410
  Serious: Yes (Hospitalization, Other)
  Sender: FDA-Public Use
  Company Number: US-BIOVITRUM-2023-US-013467

PATIENT
  Age: 14 Month
  Sex: Female

DRUGS (4)
  1. SYNAGIS [Suspect]
     Active Substance: PALIVIZUMAB
     Indication: Premature baby
     Dosage: EVERY 28DAYS -30DAYS
     Route: 030
     Dates: start: 20220815
  2. SYNAGIS [Suspect]
     Active Substance: PALIVIZUMAB
     Dates: start: 20230722
  3. SYNAGIS [Suspect]
     Active Substance: PALIVIZUMAB
     Dosage: EVERY 28 DAYS - 30 DAYS
     Route: 030
     Dates: start: 20230825
  4. SYNAGIS [Suspect]
     Active Substance: PALIVIZUMAB
     Dosage: EVERY 28DAYS - 30DAYS
     Route: 030
     Dates: start: 20220815, end: 202402

REACTIONS (7)
  - Bronchiolitis [Unknown]
  - Seizure [Unknown]
  - Off label use [Not Recovered/Not Resolved]
  - Influenza [Unknown]
  - Nasal congestion [Not Recovered/Not Resolved]
  - Pyrexia [Not Recovered/Not Resolved]
  - Platelet count decreased [Not Recovered/Not Resolved]

NARRATIVE: CASE EVENT DATE: 20220815
